FAERS Safety Report 7631854-3 (Version None)
Quarter: 2011Q3

REPORT INFORMATION
  Report Type: 
  Country: None (occurrence: None)
  Receive Date: 20110725
  Receipt Date: 20110415
  Transmission Date: 20111222
  Serious: Yes (Hospitalization, Other)
  Sender: FDA-Public Use
  Company Number: US-BRISTOL-MYERS SQUIBB COMPANY-15678808

PATIENT
  Age: 58 Year
  Sex: Male

DRUGS (4)
  1. COUMADIN [Suspect]
     Indication: DEEP VEIN THROMBOSIS
     Route: 065
  2. COUMADIN [Suspect]
     Indication: THROMBOSIS
     Route: 065
  3. REVLIMID [Suspect]
     Indication: MULTIPLE MYELOMA
     Dosage: LOT NO:AO9A2403B EXP DATE:30NOV2012
     Route: 048
     Dates: start: 20091201
  4. QUININE SULFATE [Concomitant]
     Indication: MUSCLE SPASMS

REACTIONS (1)
  - HAEMORRHAGE [None]
